FAERS Safety Report 7656817-3 (Version None)
Quarter: 2011Q3

REPORT INFORMATION
  Report Type: 
  Country: None (occurrence: None)
  Receive Date: 20110802
  Receipt Date: 20110720
  Transmission Date: 20111222
  Serious: Yes (Disabling)
  Sender: FDA-Public Use
  Company Number: GER/UKI/11/0019146

PATIENT
  Age: 68 Year
  Sex: Male
  Weight: 131 kg

DRUGS (6)
  1. ALENDRONATE SODIUM [Suspect]
     Indication: OSTEOPOROSIS PROPHYLAXIS
     Dosage: 70 MG, 1 IN 1 WK, ORAL
     Route: 048
     Dates: start: 20080331, end: 20110222
  2. NAPROXEN [Concomitant]
  3. ZOPICLONE (ZOPICLONE) [Concomitant]
  4. CHLORPHENIRAMINE MALEATE [Concomitant]
  5. PREDNISOLONE [Concomitant]
  6. CO-CODAMOL (PANADEINE CO) [Concomitant]

REACTIONS (3)
  - ASTHENIA [None]
  - EXTRASYSTOLES [None]
  - MYALGIA [None]
